FAERS Safety Report 21000938 (Version 2)
Quarter: 2022Q3

REPORT INFORMATION
  Report Type: Spontaneous
  Country: HR (occurrence: HR)
  Receive Date: 20220624
  Receipt Date: 20220926
  Transmission Date: 20221027
  Serious: Yes (Hospitalization)
  Sender: FDA-Public Use
  Company Number: HR-JNJFOC-20220624208

PATIENT
  Sex: Female

DRUGS (11)
  1. DEXAMETHASONE [Suspect]
     Active Substance: DEXAMETHASONE
     Indication: Plasma cell myeloma
     Route: 065
  2. BORTEZOMIB [Suspect]
     Active Substance: BORTEZOMIB
     Indication: Plasma cell myeloma
     Route: 065
  3. DARZALEX [Suspect]
     Active Substance: DARATUMUMAB
     Indication: Plasma cell myeloma
     Dosage: RECEIVED 15 CYCLES OF DARATUMUMAB.
     Route: 058
     Dates: start: 20210823
  4. DARZALEX [Suspect]
     Active Substance: DARATUMUMAB
     Dosage: RECEIVED 15 CYCLES OF DARATUMUMAB.
     Route: 058
     Dates: start: 20211015
  5. DARZALEX [Suspect]
     Active Substance: DARATUMUMAB
     Dosage: RECEIVED 15 CYCLES OF DARATUMUMAB.
     Route: 058
     Dates: start: 20211112
  6. DARZALEX [Suspect]
     Active Substance: DARATUMUMAB
     Dosage: RECEIVED 15 CYCLES OF DARATUMUMAB.
     Route: 058
     Dates: start: 202101
  7. DARZALEX [Suspect]
     Active Substance: DARATUMUMAB
     Dosage: RECEIVED 15 CYCLES OF DARATUMUMAB.
     Route: 058
     Dates: start: 20210917
  8. XARELTO [Concomitant]
     Active Substance: RIVAROXABAN
     Indication: Product used for unknown indication
  9. SERTRALINE HYDROCHLORIDE [Concomitant]
     Active Substance: SERTRALINE HYDROCHLORIDE
     Indication: Product used for unknown indication
  10. DEXAMETHASONE [Concomitant]
     Active Substance: DEXAMETHASONE
     Indication: Product used for unknown indication
  11. EUTHYROX [Concomitant]
     Active Substance: LEVOTHYROXINE SODIUM
     Indication: Product used for unknown indication

REACTIONS (1)
  - Respiratory tract infection [Unknown]
